FAERS Safety Report 9530818 (Version 3)
Quarter: 2013Q4

REPORT INFORMATION
  Report Type: Spontaneous
  Country: US (occurrence: US)
  Receive Date: 20130918
  Receipt Date: 20131004
  Transmission Date: 20140711
  Serious: Yes (Other)
  Sender: FDA-Public Use
  Company Number: US-JNJFOC-20130613345

PATIENT
  Age: 31 Year
  Sex: Female
  Weight: 65.77 kg

DRUGS (2)
  1. BENADRYL ALLERGY ULTRATAB [Suspect]
     Indication: PRURITUS
     Route: 065
     Dates: start: 20130618
  2. PROZAC [Concomitant]
     Indication: ANXIETY
     Route: 065
     Dates: start: 2012

REACTIONS (7)
  - Application site reaction [Recovering/Resolving]
  - Swelling face [Recovered/Resolved]
  - Eye swelling [Recovered/Resolved]
  - Off label use [Unknown]
  - Rash [Recovered/Resolved]
  - Rash [Recovered/Resolved]
  - Drug ineffective [Unknown]
